FAERS Safety Report 11310655 (Version 3)
Quarter: 2015Q4

REPORT INFORMATION
  Report Type: Report from Study
  Country: US (occurrence: US)
  Receive Date: 20150725
  Receipt Date: 20151105
  Transmission Date: 20160304
  Serious: Yes (Other)
  Sender: FDA-Public Use
  Company Number: PHEH2015US011976

PATIENT
  Age: 46 Year
  Sex: Female
  Weight: 80.73 kg

DRUGS (2)
  1. GILENYA [Suspect]
     Active Substance: FINGOLIMOD HYDROCHLORIDE
     Indication: MULTIPLE SCLEROSIS
     Dosage: 0.5 MG, QD
     Route: 048
     Dates: start: 20150620
  2. SOLU-MEDROL [Suspect]
     Active Substance: METHYLPREDNISOLONE SODIUM SUCCINATE
     Indication: PRODUCT USED FOR UNKNOWN INDICATION
     Route: 065

REACTIONS (15)
  - Weight increased [Not Recovered/Not Resolved]
  - Malaise [Unknown]
  - Blood pressure increased [Unknown]
  - Anti-JC virus antibody index [Unknown]
  - Insomnia [Unknown]
  - Multiple sclerosis relapse [Not Recovered/Not Resolved]
  - Limb discomfort [Unknown]
  - Band sensation [Unknown]
  - Hepatic enzyme increased [Unknown]
  - Thyroid hormones increased [Not Recovered/Not Resolved]
  - Trigeminal nerve disorder [Unknown]
  - Fatigue [Not Recovered/Not Resolved]
  - Dizziness [Unknown]
  - White blood cell count decreased [Unknown]
  - Memory impairment [Unknown]

NARRATIVE: CASE EVENT DATE: 20150620
